FAERS Safety Report 9176039 (Version 1)
Quarter: 2013Q1

REPORT INFORMATION
  Report Type: Spontaneous
  Country: US (occurrence: US)
  Receive Date: 20130320
  Receipt Date: 20130320
  Transmission Date: 20140127
  Serious: Yes (Other)
  Sender: FDA-Public Use
  Company Number: US-TEVA-392634USA

PATIENT
  Sex: Female

DRUGS (1)
  1. NORTREL [Suspect]
     Dosage: 0.5MG/0.035MG
     Route: 048

REACTIONS (1)
  - Coeliac disease [Unknown]
